FAERS Safety Report 11235017 (Version 1)
Quarter: 2015Q3

REPORT INFORMATION
  Report Type: Spontaneous
  Country: IT (occurrence: IT)
  Receive Date: 20150702
  Receipt Date: 20150702
  Transmission Date: 20151125
  Serious: Yes (Other)
  Sender: FDA-Public Use
  Company Number: IT-BAXTER-2015BAX034833

PATIENT
  Age: 46 Year
  Sex: Female
  Weight: 87 kg

DRUGS (3)
  1. ENDOXAN BAXTER [Suspect]
     Active Substance: CYCLOPHOSPHAMIDE
     Indication: BREAST CANCER
     Route: 042
     Dates: start: 20150225, end: 20150429
  2. EPIRUBICINA [Suspect]
     Active Substance: ACLARUBICIN
     Indication: BREAST CANCER
     Route: 042
     Dates: start: 20150225, end: 20150429
  3. FLUOROURACILE [Suspect]
     Active Substance: FLUOROURACIL
     Indication: BREAST CANCER
     Dosage: 1100 POSOLOGICAL UNIT
     Route: 042
     Dates: start: 20150225, end: 20150429

REACTIONS (1)
  - Thrombocytosis [Unknown]

NARRATIVE: CASE EVENT DATE: 20150428
